FAERS Safety Report 4296706-8 (Version None)
Quarter: 2004Q1

REPORT INFORMATION
  Report Type: 
  Country: None (occurrence: None)
  Receive Date: 20040217
  Receipt Date: 20020516
  Transmission Date: 20041129
  Serious: Yes (Disabling, Other)
  Sender: FDA-Public Use
  Company Number: WAES 0205USA02073

PATIENT
  Age: 59 Year
  Sex: Female
  Weight: 77 kg

DRUGS (1)
  1. VIOXX [Suspect]
     Indication: ARTHRITIS
     Route: 048

REACTIONS (5)
  - CARDIAC VALVE DISEASE [None]
  - CHONDROCALCINOSIS PYROPHOSPHATE [None]
  - CORONARY ARTERY DISEASE [None]
  - MYOCARDIAL INFARCTION [None]
  - THROMBOSIS [None]
